FAERS Safety Report 6173103-1 (Version None)
Quarter: 2009Q2

REPORT INFORMATION
  Report Type: 
  Country: None (occurrence: None)
  Receive Date: 20090424
  Receipt Date: 20081230
  Transmission Date: 20091009
  Serious: No
  Sender: FDA-Public Use
  Company Number: ALL1-2008-03521

PATIENT
  Age: 20 Year
  Sex: Male
  Weight: 99.8 kg

DRUGS (1)
  1. VYVANSE [Suspect]
     Indication: ATTENTION DEFICIT/HYPERACTIVITY DISORDER
     Dosage: 100 MG, 1X/DAY:QD, ORAL
     Route: 048
     Dates: start: 20080701, end: 20081220

REACTIONS (2)
  - OVERDOSE [None]
  - PENILE SIZE REDUCED [None]
